FAERS Safety Report 15644229 (Version 1)
Quarter: 2018Q4

REPORT INFORMATION
  Report Type: Spontaneous
  Country: US (occurrence: US)
  Receive Date: 20181121
  Receipt Date: 20181121
  Transmission Date: 20190205
  Serious: Yes (Life-Threatening, Hospitalization, Other)
  Sender: FDA-Public Use
  Company Number: None

PATIENT
  Age: 72 Year
  Sex: Male

DRUGS (16)
  1. ATORVASTATIN [Concomitant]
     Active Substance: ATORVASTATIN
  2. FLOVENT [Concomitant]
     Active Substance: FLUTICASONE PROPIONATE
  3. CALCITRIOL. [Concomitant]
     Active Substance: CALCITRIOL
  4. CLONAZEPAM. [Concomitant]
     Active Substance: CLONAZEPAM
  5. FINASTERIDE. [Concomitant]
     Active Substance: FINASTERIDE
  6. NITROGLYCERIN. [Concomitant]
     Active Substance: NITROGLYCERIN
  7. TRAZODONE [Concomitant]
     Active Substance: TRAZODONE HYDROCHLORIDE
  8. SOTALOL. [Concomitant]
     Active Substance: SOTALOL
  9. VITAMIN D [Concomitant]
     Active Substance: CHOLECALCIFEROL
  10. BUPROPION. [Concomitant]
     Active Substance: BUPROPION
  11. HUMIRA [Suspect]
     Active Substance: ADALIMUMAB
     Indication: RHEUMATOID ARTHRITIS
     Dosage: ?          OTHER FREQUENCY:EVERY OTHER WEEK;?
     Route: 058
     Dates: start: 20180408
  12. BENAZEPRIL [Concomitant]
     Active Substance: BENAZEPRIL HYDROCHLORIDE
  13. MEMANTINE. [Concomitant]
     Active Substance: MEMANTINE
  14. PANTOPRAZOLE [Concomitant]
     Active Substance: PANTOPRAZOLE
  15. PIOGLITAZONE. [Concomitant]
     Active Substance: PIOGLITAZONE
  16. TERAZOSIN [Concomitant]
     Active Substance: TERAZOSIN\TERAZOSIN HYDROCHLORIDE

REACTIONS (1)
  - Myocardial infarction [None]
